FAERS Safety Report 15674076 (Version 1)
Quarter: 2018Q4

REPORT INFORMATION
  Report Type: Spontaneous
  Country: NZ (occurrence: NZ)
  Receive Date: 20181129
  Receipt Date: 20181129
  Transmission Date: 20190205
  Serious: Yes (Disabling, Other)
  Sender: FDA-Public Use
  Company Number: NZ-BAXTER-2018BAX028092

PATIENT
  Age: 78 Year
  Sex: Female

DRUGS (4)
  1. SODIUM CHLORIDE, 0.9%, SOLUTION FOR INFUSION [Suspect]
     Active Substance: SODIUM CHLORIDE
     Dosage: DOSE REDUCED
     Route: 065
  2. FLUOROURACIL HS [Suspect]
     Active Substance: FLUOROURACIL
     Indication: COLORECTAL CANCER
     Dosage: OVER 46 HOURS INFUSOR
     Route: 065
     Dates: start: 20181014, end: 20181016
  3. SODIUM CHLORIDE, 0.9%, SOLUTION FOR INFUSION [Suspect]
     Active Substance: SODIUM CHLORIDE
     Indication: MEDICATION DILUTION
     Dosage: OVER 46 HOURS INFUSOR
     Route: 065
     Dates: start: 20181014, end: 20181016
  4. FLUOROURACIL HS [Suspect]
     Active Substance: FLUOROURACIL
     Dosage: DOSE REDUCED
     Route: 065

REACTIONS (4)
  - Mucosal inflammation [Recovered/Resolved]
  - Feeding disorder [Unknown]
  - Incorrect drug administration rate [Unknown]
  - Device infusion issue [Unknown]

NARRATIVE: CASE EVENT DATE: 20181014
